FAERS Safety Report 10039823 (Version 1)
Quarter: 2014Q1

REPORT INFORMATION
  Report Type: Spontaneous
  Country: VE (occurrence: VE)
  Receive Date: 20140326
  Receipt Date: 20140326
  Transmission Date: 20141002
  Serious: Yes (Other)
  Sender: FDA-Public Use
  Company Number: VE-JNJFOC-20140309329

PATIENT
  Age: 56 Year
  Sex: Male
  Weight: 70 kg

DRUGS (1)
  1. HALDOL DEPOT [Suspect]
     Indication: SCHIZOPHRENIA
     Route: 030
     Dates: start: 2010

REACTIONS (2)
  - Condition aggravated [Unknown]
  - Therapy cessation [Unknown]
